FAERS Safety Report 8587085-6 (Version None)
Quarter: 2012Q3

REPORT INFORMATION
  Report Type: 
  Country: None (occurrence: None)
  Receive Date: 20120810
  Receipt Date: 20120727
  Transmission Date: 20120928
  Serious: No
  Sender: FDA-Public Use
  Company Number: US-009507513-2012SP036876

PATIENT

DRUGS (3)
  1. CLARITIN REDITABS [Suspect]
     Indication: SNEEZING
     Dosage: 10 MG, QD
     Route: 048
     Dates: start: 20120610, end: 20120620
  2. CLARITIN REDITABS [Suspect]
     Indication: MEDICAL OBSERVATION
  3. CLARITIN REDITABS [Suspect]
     Indication: LACRIMATION INCREASED

REACTIONS (1)
  - THERAPEUTIC PRODUCT INEFFECTIVE [None]
